FAERS Safety Report 17597168 (Version 4)
Quarter: 2020Q2

REPORT INFORMATION
  Report Type: Spontaneous
  Country: EC (occurrence: EC)
  Receive Date: 20200330
  Receipt Date: 20200515
  Transmission Date: 20200713
  Serious: Yes (Other)
  Sender: FDA-Public Use
  Company Number: EC-ROCHE-2575036

PATIENT
  Age: 60 Year
  Sex: Male

DRUGS (3)
  1. ACTILYSE [Suspect]
     Active Substance: ALTEPLASE
     Indication: MYOCARDIAL INFARCTION
     Route: 042
     Dates: start: 20200311, end: 20200311
  2. ACTILYSE [Suspect]
     Active Substance: ALTEPLASE
     Indication: ELECTROCARDIOGRAM ST SEGMENT ELEVATION
  3. ATORVASTATIN [Concomitant]
     Active Substance: ATORVASTATIN
     Dosage: AT NIGHT
     Route: 048

REACTIONS (3)
  - Pneumonia [Recovered/Resolved]
  - Vascular injury [Recovered/Resolved]
  - COVID-19 [Not Recovered/Not Resolved]

NARRATIVE: CASE EVENT DATE: 20200311
